FAERS Safety Report 8276414-9 (Version None)
Quarter: 2012Q2

REPORT INFORMATION
  Report Type: 
  Country: None (occurrence: None)
  Receive Date: 20120412
  Receipt Date: 20120410
  Transmission Date: 20120825
  Serious: Yes (Death, Hospitalization, Other)
  Sender: FDA-Public Use
  Company Number: JP-BRISTOL-MYERS SQUIBB COMPANY-16436297

PATIENT
  Age: 67 Year
  Sex: Male

DRUGS (2)
  1. ABATACEPT [Suspect]
     Indication: RHEUMATOID ARTHRITIS
     Dosage: 02AUG10-11JAN11:152MG/WEEK:SC 02AUG10-20DEC10:150MG/MONTH:IV 19JAN11-18JUL11:158MG/WEEK:SC
     Route: 058
     Dates: start: 20100802, end: 20110718
  2. METHOTREXATE [Suspect]
     Indication: RHEUMATOID ARTHRITIS
     Dates: start: 20090820, end: 20120308

REACTIONS (1)
  - B-CELL LYMPHOMA [None]
